FAERS Safety Report 25174682 (Version 2)
Quarter: 2025Q2

REPORT INFORMATION
  Report Type: Report from Study
  Country: FR (occurrence: FR)
  Receive Date: 20250408
  Receipt Date: 20250526
  Transmission Date: 20250716
  Serious: Yes (Other)
  Sender: NOVARTIS
  Company Number: FR-002147023-NVSC2023FR260549

PATIENT
  Age: 43 Year
  Sex: Female

DRUGS (4)
  1. KISQALI [Suspect]
     Active Substance: RIBOCICLIB SUCCINATE
     Indication: HER2 negative breast cancer
     Dosage: 600 MG, QD
     Route: 048
     Dates: start: 20230908, end: 20240306
  2. KISQALI [Suspect]
     Active Substance: RIBOCICLIB SUCCINATE
     Indication: Breast cancer metastatic
     Dosage: 400 MG, QD
     Route: 048
     Dates: start: 20240306, end: 20241122
  3. Anastrozole EG [Concomitant]
     Indication: HER2 negative breast cancer
     Dosage: 1 MG, QD
     Route: 048
     Dates: start: 20230816
  4. Anastrozole EG [Concomitant]
     Indication: Breast cancer metastatic

REACTIONS (4)
  - Neutropenia [Recovered/Resolved]
  - Hepatic cytolysis [Recovered/Resolved]
  - Burning sensation [Not Recovered/Not Resolved]
  - Hyperkeratosis [Recovered/Resolved]

NARRATIVE: CASE EVENT DATE: 20231127
